FAERS Safety Report 9782321 (Version 1)
Quarter: 2013Q4

REPORT INFORMATION
  Report Type: Spontaneous
  Country: FR (occurrence: FR)
  Receive Date: 20131226
  Receipt Date: 20131226
  Transmission Date: 20140711
  Serious: Yes (Hospitalization, Other)
  Sender: FDA-Public Use
  Company Number: FR-ELI_LILLY_AND_COMPANY-FR201312006117

PATIENT
  Age: 74 Year
  Sex: Female
  Weight: 76 kg

DRUGS (5)
  1. ZYPREXA [Suspect]
     Indication: PRODUCT USED FOR UNKNOWN INDICATION
     Dosage: 10 MG, QD
     Route: 048
     Dates: start: 201211
  2. TERCIAN [Suspect]
     Indication: PRODUCT USED FOR UNKNOWN INDICATION
     Dosage: 10 MG, TID
     Route: 048
     Dates: start: 201211
  3. SEROPLEX [Concomitant]
     Indication: PRODUCT USED FOR UNKNOWN INDICATION
     Dosage: 10 MG, QD
     Route: 065
  4. ARIMIDEX [Concomitant]
     Indication: PRODUCT USED FOR UNKNOWN INDICATION
     Dosage: 1 MG, QD
     Route: 065
     Dates: start: 2010
  5. COAPROVEL 150/12.5 [Concomitant]
     Indication: PRODUCT USED FOR UNKNOWN INDICATION
     Dosage: 1 DF, QD
     Route: 065
     Dates: start: 201211

REACTIONS (21)
  - Renal failure acute [Unknown]
  - Nephrolithiasis [Unknown]
  - Hypokalaemia [Recovered/Resolved]
  - Inflammation [Recovered/Resolved]
  - Hypotension [Unknown]
  - Dehydration [Unknown]
  - Colitis [Recovered/Resolved]
  - Ascites [Unknown]
  - Faecaloma [Recovered/Resolved]
  - Diarrhoea [Unknown]
  - Leukocytosis [Recovered/Resolved]
  - Neutrophil count abnormal [Unknown]
  - Haemoglobin abnormal [Not Recovered/Not Resolved]
  - Wound [Unknown]
  - Tachycardia [Unknown]
  - Pyrexia [Recovered/Resolved]
  - Dyskinesia [Unknown]
  - Faecaloma [Recovered/Resolved]
  - Diarrhoea [Unknown]
  - Hypokalaemia [Recovered/Resolved]
  - Constipation [Unknown]
